FAERS Safety Report 23964951 (Version 2)
Quarter: 2024Q2

REPORT INFORMATION
  Report Type: Spontaneous
  Country: KR (occurrence: KR)
  Receive Date: 20240612
  Receipt Date: 20240619
  Transmission Date: 20240716
  Serious: Yes (Other)
  Sender: FDA-Public Use
  Company Number: KR-ALKEM LABORATORIES LIMITED-KR-ALKEM-2024-12136

PATIENT
  Age: 42 Year
  Sex: Male

DRUGS (7)
  1. DICLOFENAC [Interacting]
     Active Substance: DICLOFENAC
     Indication: Cerebral infarction
     Dosage: UNK
     Route: 065
  2. CEFUROXIME AXETIL [Interacting]
     Active Substance: CEFUROXIME AXETIL
     Indication: Cerebral infarction
     Dosage: UNK
     Route: 065
  3. ACETAMINOPHEN [Interacting]
     Active Substance: ACETAMINOPHEN
     Indication: Cerebral infarction
     Dosage: UNK
     Route: 065
  4. HERBALS [Interacting]
     Active Substance: HERBALS
     Indication: Product used for unknown indication
     Dosage: UNK
     Route: 065
  5. GLYCYRRHIZA GLABRA [Interacting]
     Active Substance: GLYCYRRHIZA GLABRA
     Indication: Product used for unknown indication
     Dosage: UNK
     Route: 065
  6. HERBALS [Interacting]
     Active Substance: HERBALS
     Indication: Product used for unknown indication
     Dosage: UNK
     Route: 065
  7. HERBALS [Interacting]
     Active Substance: HERBALS
     Indication: Product used for unknown indication
     Dosage: UNK
     Route: 065

REACTIONS (2)
  - Drug interaction [Unknown]
  - Cholestatic liver injury [Recovering/Resolving]
